FAERS Safety Report 24955697 (Version 1)
Quarter: 2025Q1

REPORT INFORMATION
  Report Type: Spontaneous
  Country: US (occurrence: None)
  Receive Date: 20250211
  Receipt Date: 20250211
  Transmission Date: 20250408
  Serious: Yes (Other)
  Sender: FDA-CTU
  Company Number: None

PATIENT
  Age: 27 Year
  Sex: Male

DRUGS (1)
  1. BREXUCABTAGENE AUTOLEUCEL [Suspect]
     Active Substance: BREXUCABTAGENE AUTOLEUCEL
     Indication: B-cell type acute leukaemia
     Dates: start: 20241025

REACTIONS (5)
  - Cytokine release syndrome [None]
  - Body temperature increased [None]
  - Hypotension [None]
  - Immune effector cell-associated neurotoxicity syndrome [None]
  - Brain oedema [None]

NARRATIVE: CASE EVENT DATE: 20241025
